FAERS Safety Report 7378426-6 (Version None)
Quarter: 2011Q1

REPORT INFORMATION
  Report Type: 
  Country: None (occurrence: None)
  Receive Date: 20110328
  Receipt Date: 20110316
  Transmission Date: 20110831
  Serious: Yes (Hospitalization)
  Sender: FDA-Public Use
  Company Number: US-MERCK-1103USA02469

PATIENT
  Age: 54 Year
  Sex: Female

DRUGS (2)
  1. COZAAR [Suspect]
     Route: 048
     Dates: start: 20060301
  2. HIZAAR [Suspect]
     Route: 048

REACTIONS (6)
  - ANGINA PECTORIS [None]
  - OVERDOSE [None]
  - MIGRAINE [None]
  - FEELING ABNORMAL [None]
  - PALPITATIONS [None]
  - COUGH [None]
